FAERS Safety Report 8899398 (Version 1)
Quarter: 2012Q4

REPORT INFORMATION
  Report Type: 
  Country: US (occurrence: US)
  Receive Date: 20121108
  Receipt Date: 20121108
  Transmission Date: 20130627
  Serious: Yes (Other)
  Sender: FDA-Public Use
  Company Number: US-AMGEN-USASP2012027009

PATIENT
  Age: 27 Year
  Sex: Female

DRUGS (2)
  1. ENBREL [Suspect]
     Indication: RHEUMATOID ARTHRITIS
     Dosage: 50 mg, qwk
     Dates: start: 20101208, end: 201202
  2. ENBREL [Suspect]
     Indication: HIDRADENITIS

REACTIONS (2)
  - Hepatic enzyme increased [Recovered/Resolved]
  - Rash [Recovered/Resolved]
